FAERS Safety Report 7702842-3 (Version None)
Quarter: 2011Q3

REPORT INFORMATION
  Report Type: 
  Country: None (occurrence: None)
  Receive Date: 20110823
  Receipt Date: 20110812
  Transmission Date: 20111222
  Serious: Yes (Hospitalization)
  Sender: FDA-Public Use
  Company Number: US-JNJFOC-20110806897

PATIENT
  Sex: Female
  Weight: 97.52 kg

DRUGS (11)
  1. REMICADE [Suspect]
     Dosage: DOSE INCREASE RECEIVED
     Route: 042
     Dates: start: 20110801
  2. PREVACID [Concomitant]
     Indication: GASTROOESOPHAGEAL REFLUX DISEASE
  3. ALLEGRA [Concomitant]
     Indication: MULTIPLE ALLERGIES
     Route: 048
  4. REMICADE [Suspect]
     Indication: RHEUMATOID ARTHRITIS
     Route: 042
     Dates: start: 20100101
  5. REMICADE [Suspect]
     Dosage: DOSE INCREASE RECEIVED
     Route: 042
     Dates: start: 20110601
  6. CRESTOR [Concomitant]
     Indication: BLOOD CHOLESTEROL
     Route: 048
  7. COUMADIN [Concomitant]
     Indication: THROMBOSIS
     Dosage: MON. AND FRI. 3 MG TAKEN
     Dates: start: 20010101
  8. PREDNISONE [Concomitant]
     Indication: RHEUMATOID ARTHRITIS
     Route: 048
  9. FOLIC ACID [Concomitant]
     Indication: RHEUMATOID ARTHRITIS
     Route: 048
  10. HUMALOG [Concomitant]
     Indication: TYPE 2 DIABETES MELLITUS
     Dosage: 75/25 UNITS
     Route: 058
     Dates: start: 20100101
  11. COUMADIN [Concomitant]
     Dates: start: 20010101

REACTIONS (8)
  - DRUG INEFFECTIVE [None]
  - DYSPEPSIA [None]
  - HYPERTENSION [None]
  - URTICARIA [None]
  - CHEST PAIN [None]
  - MUSCLE SPASMS [None]
  - RASH [None]
  - EYELID OEDEMA [None]
